FAERS Safety Report 4630627-3 (Version None)
Quarter: 2005Q2

REPORT INFORMATION
  Report Type: 
  Country: None (occurrence: None)
  Receive Date: 20050408
  Receipt Date: 20050405
  Transmission Date: 20051028
  Serious: Yes (Death, Hospitalization)
  Sender: FDA-Public Use
  Company Number: GB-BRISTOL-MYERS SQUIBB COMPANY-12921979

PATIENT
  Age: 63 Year
  Sex: Female
  Weight: 80 kg

DRUGS (4)
  1. CARBOPLATIN [Suspect]
     Indication: BLADDER CANCER
     Dates: start: 20020320, end: 20020320
  2. GEMZAR [Suspect]
     Indication: BLADDER CANCER
     Dosage: CUMULATIVE DOSE:  3660 MG
     Dates: start: 20020320, end: 20020327
  3. WARFARIN [Concomitant]
     Indication: DEEP VEIN THROMBOSIS
     Dates: end: 20020331
  4. MORPHINE SULFATE [Concomitant]

REACTIONS (7)
  - ARTERIOVENOUS FISTULA [None]
  - DIARRHOEA [None]
  - FEBRILE NEUTROPENIA [None]
  - GRAND MAL CONVULSION [None]
  - HAEMATEMESIS [None]
  - PULMONARY EMBOLISM [None]
  - RECTAL HAEMORRHAGE [None]
